FAERS Safety Report 5076897-1 (Version None)
Quarter: 2006Q3

REPORT INFORMATION
  Report Type: 
  Country: None (occurrence: None)
  Receive Date: 20060810
  Receipt Date: 20060725
  Transmission Date: 20061208
  Serious: Yes (Hospitalization)
  Sender: FDA-Public Use
  Company Number: BR-ROCHE-457020

PATIENT
  Age: 69 Year
  Sex: Male

DRUGS (9)
  1. PEGASYS [Suspect]
     Indication: HEPATITIS C
     Route: 058
     Dates: start: 20060505, end: 20060713
  2. PEGASYS [Suspect]
     Route: 058
     Dates: start: 20060802
  3. RIBAVIRIN [Suspect]
     Indication: HEPATITIS C
     Route: 048
     Dates: start: 20060505, end: 20060720
  4. MULTIVITAMIN NOS [Concomitant]
     Indication: VITAMIN SUPPLEMENTATION
     Route: 048
     Dates: start: 20060515, end: 20060721
  5. PINDOLOL [Concomitant]
     Indication: HYPERTENSION
     Route: 048
     Dates: end: 20060721
  6. GRANULOKINE [Concomitant]
     Indication: NEUTROPENIA
     Dates: start: 20060515, end: 20060721
  7. FLUOXETINE [Concomitant]
     Indication: DEPRESSION
     Dates: start: 20060715, end: 20060721
  8. ERYTHROPOIETIN HUMAN [Concomitant]
     Dates: start: 20060515, end: 20060515
  9. BLOOD TRANSFUSION [Concomitant]
     Dates: start: 20060515, end: 20060515

REACTIONS (5)
  - DEPRESSION [None]
  - FATIGUE [None]
  - HAEMOLYTIC ANAEMIA [None]
  - HYPONATRAEMIA [None]
  - NEUTROPENIA [None]
